FAERS Safety Report 11053326 (Version 1)
Quarter: 2015Q2

REPORT INFORMATION
  Report Type: Report from Study
  Country: DE (occurrence: ES)
  Receive Date: 20150421
  Receipt Date: 20150421
  Transmission Date: 20150821
  Serious: Yes (Death)
  Sender: FDA-Public Use
  Company Number: DE-ACTELION-A-US2013-116614

PATIENT
  Sex: Male

DRUGS (2)
  1. VENTAVIS [Suspect]
     Active Substance: ILOPROST
     Indication: PULMONARY HYPERTENSION
     Dosage: 5 MCG, 7 TIMES DAILY
     Route: 055
     Dates: start: 20100428
  2. OXYGEN. [Concomitant]
     Active Substance: OXYGEN

REACTIONS (1)
  - Death [Fatal]
